FAERS Safety Report 7659453-8 (Version None)
Quarter: 2011Q3

REPORT INFORMATION
  Report Type: 
  Country: None (occurrence: None)
  Receive Date: 20110805
  Receipt Date: 20110729
  Transmission Date: 20111222
  Serious: Yes (Other)
  Sender: FDA-Public Use
  Company Number: US-JNJFOC-20110801157

PATIENT
  Sex: Female
  Weight: 110.68 kg

DRUGS (2)
  1. DURAGESIC-100 [Suspect]
     Indication: MIGRAINE
     Route: 062
     Dates: start: 20110401
  2. STADOL [Concomitant]
     Indication: MIGRAINE
     Route: 055
     Dates: start: 20080401

REACTIONS (5)
  - PRODUCT ADHESION ISSUE [None]
  - WRONG TECHNIQUE IN DRUG USAGE PROCESS [None]
  - TOOTH ABSCESS [None]
  - OFF LABEL USE [None]
  - DRUG INEFFECTIVE [None]
